FAERS Safety Report 8963800 (Version 1)
Quarter: 2012Q4

REPORT INFORMATION
  Report Type: 
  Country: US (occurrence: US)
  Receive Date: 20121214
  Receipt Date: 20121214
  Transmission Date: 20130627
  Serious: Yes (Other)
  Sender: FDA-Public Use
  Company Number: US-ABBOTT-12P-163-1018339-00

PATIENT
  Age: 57 Year
  Sex: Female
  Weight: 65.83 kg

DRUGS (1)
  1. SYNTHROID [Suspect]
     Indication: PRODUCT USED FOR UNKNOWN INDICATION
     Dates: start: 20121201

REACTIONS (4)
  - Hallucination [Not Recovered/Not Resolved]
  - Feeling abnormal [Recovered/Resolved]
  - Vomiting [Not Recovered/Not Resolved]
  - Dysphonia [Not Recovered/Not Resolved]
